FAERS Safety Report 21420406 (Version 2)
Quarter: 2022Q4

REPORT INFORMATION
  Report Type: Spontaneous
  Country: AT (occurrence: AT)
  Receive Date: 20221007
  Receipt Date: 20221206
  Transmission Date: 20230113
  Serious: No
  Sender: FDA-Public Use
  Company Number: AT-CELLTRION INC.-2022AT016046

PATIENT

DRUGS (10)
  1. INFLIXIMAB [Suspect]
     Active Substance: INFLIXIMAB
     Indication: Pulmonary sarcoidosis
     Dosage: 300MG PER ADMINISTRATION (WEEK 0,2,6 THEN EVERY 8 WEEK)
     Route: 042
     Dates: start: 20221003
  2. AZATHIOPRINE [Concomitant]
     Active Substance: AZATHIOPRINE
     Dosage: 50 MG; 3-0-0
  3. PREDNISOLONE [Concomitant]
     Active Substance: PREDNISOLONE
     Dosage: 5 MG; 1.5-0-0
  4. PANTOPRAZOLE SODIUM [Concomitant]
     Active Substance: PANTOPRAZOLE SODIUM
     Dosage: 40 MG; 1-0-0
  5. BISOPROLOL FUMARATE [Concomitant]
     Active Substance: BISOPROLOL FUMARATE
     Dosage: 5 MG; 0.5-0-0.5
  6. SPIRONOLACTONE [Concomitant]
     Active Substance: SPIRONOLACTONE
     Dosage: 50 MG; 1-0-0
  7. IVABRADINE [Concomitant]
     Active Substance: IVABRADINE
     Dosage: 7.5 MG; 1-0-1
  8. JARDIANCE [Concomitant]
     Active Substance: EMPAGLIFLOZIN
     Dosage: 10 MG; 1-0-1
  9. ENTRESTO [Concomitant]
     Active Substance: SACUBITRIL\VALSARTAN
     Dosage: 97/103 MG; 1-0-1
  10. VITAMINS WITH MINERALS [Concomitant]
     Active Substance: MINERALS\VITAMINS
     Dosage: 1-0-1

REACTIONS (1)
  - Off label use [Unknown]
